FAERS Safety Report 8427639-0 (Version None)
Quarter: 2012Q2

REPORT INFORMATION
  Report Type: 
  Country: None (occurrence: None)
  Receive Date: 20120611
  Receipt Date: 20120601
  Transmission Date: 20120825
  Serious: Yes (Hospitalization)
  Sender: FDA-Public Use
  Company Number: JP-PFIZER INC-2012115876

PATIENT
  Age: 42 Year
  Sex: Female
  Weight: 62.6 kg

DRUGS (6)
  1. VARENICLINE TARTRATE [Suspect]
     Dosage: UNK, 1X/DAY
     Route: 048
     Dates: start: 20120306, end: 20120306
  2. VARENICLINE TARTRATE [Suspect]
     Dosage: UNK, 2X/DAY
     Route: 048
     Dates: start: 20110923, end: 20110926
  3. VARENICLINE TARTRATE [Suspect]
     Dosage: UNK, 2X/DAY
     Route: 048
     Dates: start: 20110927, end: 20111003
  4. VARENICLINE TARTRATE [Suspect]
     Dosage: UNK, 2X/DAY
     Route: 048
     Dates: start: 20111004, end: 20111004
  5. VARENICLINE TARTRATE [Suspect]
     Dosage: UNK, 2X/DAY
     Route: 048
     Dates: start: 20111005, end: 20120305
  6. VARENICLINE TARTRATE [Suspect]
     Indication: SMOKING CESSATION THERAPY
     Dosage: UNK, 1X/DAY
     Route: 048
     Dates: start: 20110920, end: 20110922

REACTIONS (1)
  - INTERVERTEBRAL DISC PROTRUSION [None]
